FAERS Safety Report 10896350 (Version 1)
Quarter: 2015Q1

REPORT INFORMATION
  Report Type: Spontaneous
  Country: GB (occurrence: GB)
  Receive Date: 20150309
  Receipt Date: 20150309
  Transmission Date: 20150721
  Serious: Yes (Other)
  Sender: FDA-Public Use
  Company Number: GB-ACCORD-029004

PATIENT
  Age: 49 Year
  Sex: Female
  Weight: 105.22 kg

DRUGS (4)
  1. NUROFEN [Concomitant]
     Active Substance: IBUPROFEN
  2. ANADIN EXTRA [Concomitant]
     Active Substance: ACETAMINOPHEN\ASPIRIN\CAFFEINE
  3. CAMPHOR/CINEOLE/MENTHOL/OXYMETAZOLINE HYDROCHLORIDE [Concomitant]
  4. SERTRALINE [Suspect]
     Active Substance: SERTRALINE HYDROCHLORIDE
     Indication: DEPRESSION
     Route: 048
     Dates: start: 2012

REACTIONS (2)
  - Vulvovaginal dryness [Not Recovered/Not Resolved]
  - Alopecia [Not Recovered/Not Resolved]
